FAERS Safety Report 14997207 (Version 1)
Quarter: 2018Q2

REPORT INFORMATION
  Report Type: Spontaneous
  Country: PL (occurrence: PL)
  Receive Date: 20180611
  Receipt Date: 20180611
  Transmission Date: 20180711
  Serious: Yes (Life-Threatening, Hospitalization)
  Sender: FDA-Public Use
  Company Number: PL-BAUSCH-BL-2018-016290

PATIENT
  Age: 69 Year
  Sex: Male
  Weight: 71 kg

DRUGS (4)
  1. GROFIBRAT [Concomitant]
     Indication: PRODUCT USED FOR UNKNOWN INDICATION
     Route: 048
     Dates: start: 2016, end: 20171219
  2. TARGRETIN [Suspect]
     Active Substance: BEXAROTENE
     Indication: LYMPHOMA
     Dosage: 8/6 CAPSULES DAILY
     Route: 048
     Dates: start: 20151202, end: 20171219
  3. VITAMINUM PP [Concomitant]
     Indication: PRODUCT USED FOR UNKNOWN INDICATION
     Route: 048
     Dates: start: 20151202, end: 20171219
  4. EUTHYROX N [Concomitant]
     Active Substance: LEVOTHYROXINE SODIUM
     Indication: PRODUCT USED FOR UNKNOWN INDICATION
     Dosage: 50MG IN THE MORNING AND 100MG IN THE EVENING (2 IN 1 DAY)
     Route: 048
     Dates: start: 20151202

REACTIONS (9)
  - Malaise [Recovering/Resolving]
  - Secondary hypothyroidism [Recovering/Resolving]
  - Syncope [Recovering/Resolving]
  - Blood triglycerides increased [Recovering/Resolving]
  - Blood cholesterol increased [Recovering/Resolving]
  - Adrenal insufficiency [Recovering/Resolving]
  - High density lipoprotein decreased [Recovering/Resolving]
  - Blood creatinine increased [Recovering/Resolving]
  - Asthenia [Recovering/Resolving]

NARRATIVE: CASE EVENT DATE: 20171217
